FAERS Safety Report 11966010 (Version 1)
Quarter: 2016Q1

REPORT INFORMATION
  Report Type: Spontaneous
  Country: RU (occurrence: RU)
  Receive Date: 20160127
  Receipt Date: 20160127
  Transmission Date: 20160526
  Serious: Yes (Other)
  Sender: FDA-Public Use
  Company Number: RU-ASTRAZENECA-2016SE07141

PATIENT
  Age: 67 Year
  Sex: Female

DRUGS (9)
  1. ATORIS [Concomitant]
     Active Substance: ATORVASTATIN CALCIUM
  2. VEROSPIRON [Concomitant]
     Active Substance: SPIRONOLACTONE
  3. BRILINTA [Suspect]
     Active Substance: TICAGRELOR
     Route: 048
     Dates: start: 201508
  4. NITROSPRAY [Concomitant]
  5. ENALAPRIL [Concomitant]
     Active Substance: ENALAPRIL
  6. CARDIKET [Concomitant]
     Active Substance: ISOSORBIDE DINITRATE
  7. EGILOK [Concomitant]
     Active Substance: METOPROLOL TARTRATE
  8. CORVALOL [Concomitant]
     Active Substance: BROMISOVAL\PHENOBARBITAL SODIUM
  9. OMEZ [Concomitant]
     Active Substance: OMEPRAZOLE

REACTIONS (3)
  - Angina pectoris [Not Recovered/Not Resolved]
  - Syncope [Not Recovered/Not Resolved]
  - Dyspnoea [Not Recovered/Not Resolved]

NARRATIVE: CASE EVENT DATE: 201601
